FAERS Safety Report 26067939 (Version 1)
Quarter: 2025Q4

REPORT INFORMATION
  Report Type: Spontaneous
  Country: US (occurrence: US)
  Receive Date: 20251120
  Receipt Date: 20251120
  Transmission Date: 20260117
  Serious: Yes (Other)
  Sender: HIKMA
  Company Number: US-HIKMA PHARMACEUTICALS USA INC.-US-H14001-24-01983

PATIENT
  Sex: Male

DRUGS (1)
  1. METHADONE HYDROCHLORIDE [Suspect]
     Active Substance: METHADONE HYDROCHLORIDE
     Indication: Pain
     Dosage: 1 TABLET IN THE MORNING
     Route: 065

REACTIONS (14)
  - Hangover [Unknown]
  - Diplopia [Unknown]
  - Gait inability [Unknown]
  - Circulatory collapse [Unknown]
  - Asthenia [Unknown]
  - Loss of consciousness [Unknown]
  - Nausea [Unknown]
  - Near death experience [Unknown]
  - Feeling abnormal [Unknown]
  - Therapeutic product effect delayed [Unknown]
  - Product use issue [Unknown]
  - Counterfeit product administered [Unknown]
  - Therapeutic product effect prolonged [Unknown]
  - Overdose [Unknown]
